FAERS Safety Report 4730321-4 (Version None)
Quarter: 2005Q3

REPORT INFORMATION
  Report Type: 
  Country: None (occurrence: None)
  Receive Date: 20050801
  Receipt Date: 20050721
  Transmission Date: 20060218
  Serious: Yes (Hospitalization)
  Sender: FDA-Public Use
  Company Number: US-JNJFOC-20050705067

PATIENT
  Sex: Male
  Weight: 106.6 kg

DRUGS (9)
  1. DURAGESIC-100 [Suspect]
     Route: 062
     Dates: start: 20030101
  2. OXYCODONE [Concomitant]
     Indication: PAIN
     Route: 048
  3. SYNTHROID [Concomitant]
     Indication: HYPOTHYROIDISM
     Route: 048
     Dates: start: 20010101
  4. NORTRIPTYLINE HCL [Concomitant]
     Indication: SLEEP DISORDER THERAPY
     Route: 048
  5. PROZAC [Concomitant]
     Indication: POST-TRAUMATIC STRESS DISORDER
     Route: 048
     Dates: start: 19950101
  6. VERAPAMIL [Concomitant]
     Indication: BLOOD PRESSURE ABNORMAL
     Route: 048
     Dates: start: 19950101
  7. VERAPAMIL [Concomitant]
     Route: 048
     Dates: start: 19950101
  8. AMBIEN [Concomitant]
     Indication: SLEEP DISORDER THERAPY
     Route: 048
  9. XANAX [Concomitant]
     Route: 048
     Dates: start: 20020101

REACTIONS (3)
  - BLADDER CANCER RECURRENT [None]
  - DERMATITIS CONTACT [None]
  - THERAPEUTIC RESPONSE DECREASED [None]
